FAERS Safety Report 24072960 (Version 2)
Quarter: 2024Q4

REPORT INFORMATION
  Report Type: Spontaneous
  Country: US (occurrence: US)
  Receive Date: 20240710
  Receipt Date: 20241119
  Transmission Date: 20250114
  Serious: No
  Sender: ROCHE
  Company Number: ROCHE-10000021524

PATIENT

DRUGS (1)
  1. OCREVUS [Suspect]
     Active Substance: OCRELIZUMAB
     Indication: Product used for unknown indication
     Route: 065

REACTIONS (3)
  - Nasopharyngitis [Unknown]
  - B-lymphocyte count decreased [Unknown]
  - Nerve injury [Unknown]
